FAERS Safety Report 23862929 (Version 1)
Quarter: 2024Q2

REPORT INFORMATION
  Report Type: Other
  Country: JP (occurrence: JP)
  Receive Date: 20240516
  Receipt Date: 20240516
  Transmission Date: 20240716
  Serious: Yes (Other)
  Sender: FDA-Public Use
  Company Number: JP-CHUGAI-2024016192

PATIENT
  Age: 4 Decade
  Sex: Female

DRUGS (4)
  1. ROZLYTREK [Suspect]
     Active Substance: ENTRECTINIB
     Indication: NTRK gene fusion cancer
     Dosage: UNK
     Route: 065
  2. ROZLYTREK [Suspect]
     Active Substance: ENTRECTINIB
     Indication: Breast cancer
  3. LAROTRECTINIB SULFATE [Concomitant]
     Active Substance: LAROTRECTINIB SULFATE
     Indication: NTRK gene fusion cancer
     Dosage: UNK
  4. LAROTRECTINIB SULFATE [Concomitant]
     Active Substance: LAROTRECTINIB SULFATE
     Indication: Breast cancer

REACTIONS (2)
  - Pericarditis [Unknown]
  - Ataxia [Unknown]
